FAERS Safety Report 5340408-3 (Version None)
Quarter: 2007Q2

REPORT INFORMATION
  Report Type: 
  Country: None (occurrence: None)
  Receive Date: 20070405
  Receipt Date: 20061219
  Transmission Date: 20071010
  Serious: No
  Sender: FDA-Public Use
  Company Number: US200612003572

PATIENT
  Age: 34 Year
  Sex: Female

DRUGS (3)
  1. CYMBALTA [Suspect]
     Indication: ANXIETY DISORDER
     Dosage: 60 MG, DAILY (1/D)
     Dates: start: 20050101
  2. LEXAPRO /USA/ (ESCITALOPRAM) [Concomitant]
  3. PHENIRAMINE (PHENIRAMINE) [Concomitant]

REACTIONS (2)
  - INFERTILITY FEMALE [None]
  - OLIGOMENORRHOEA [None]
